FAERS Safety Report 17866800 (Version 1)
Quarter: 2020Q2

REPORT INFORMATION
  Report Type: Spontaneous
  Country: PT (occurrence: PT)
  Receive Date: 20200605
  Receipt Date: 20200605
  Transmission Date: 20200714
  Serious: Yes (Other)
  Sender: FDA-Public Use
  Company Number: PT-ASTRAZENECA-2020SE71870

PATIENT
  Age: 66 Year
  Sex: Female

DRUGS (4)
  1. VENOSMIL [Concomitant]
     Dosage: 200 MG
  2. DEXIBUPROFEN [Concomitant]
     Active Substance: DEXIBUPROFEN
     Dosage: 400 MG
  3. OMEPRAZOLE. [Suspect]
     Active Substance: OMEPRAZOLE
     Indication: GASTROOESOPHAGEAL REFLUX DISEASE
     Route: 048
     Dates: start: 2009, end: 2016
  4. RALOXIFEN [Concomitant]
     Active Substance: RALOXIFENE
     Dosage: 60 MG

REACTIONS (1)
  - Pneumonia [Unknown]
